FAERS Safety Report 23128464 (Version 1)
Quarter: 2023Q4

REPORT INFORMATION
  Report Type: Spontaneous
  Country: US (occurrence: US)
  Receive Date: 20231031
  Receipt Date: 20231031
  Transmission Date: 20240109
  Serious: Yes (Hospitalization, Other)
  Sender: FDA-Public Use
  Company Number: US-LUPIN PHARMACEUTICALS INC.-2023-09461

PATIENT
  Age: 22 Year

DRUGS (12)
  1. DULOXETINE [Suspect]
     Active Substance: DULOXETINE
     Indication: Major depression
     Dosage: 40 MG, BID (INITIALLY 40MG TWICE A DAY WAS STARTED AND THEN RESTARTED WITH REDUCED DOSE OF 40MG ONCE
     Route: 065
     Dates: start: 20211229
  2. DULOXETINE [Suspect]
     Active Substance: DULOXETINE
     Dosage: 40 MG, QD (RESTARTED ON DULOXETINE AT A LOWER DOSE OF 40 MG DAILY)
     Route: 065
  3. BUPROPION [Suspect]
     Active Substance: BUPROPION
     Indication: Major depression
     Dosage: 300 MG, QD
     Route: 065
     Dates: start: 20211229
  4. BUPROPION [Suspect]
     Active Substance: BUPROPION
     Dosage: 450 MG, QD (THE PATIENT HAD BEEN ON THE INCREASED DOSE OF BUPROPION450MG FOR 35 DAYS)
     Route: 065
     Dates: start: 20220301
  5. BUPROPION [Suspect]
     Active Substance: BUPROPION
     Dosage: 450 MG, QD (THE INCREASED DOSE OF GABAPENTIN FOR 54 DAYS)
     Route: 065
  6. GABAPENTIN [Suspect]
     Active Substance: GABAPENTIN
     Indication: Migraine
     Dosage: 100 MG, TID (THREE TIMES A DAY)
     Route: 065
     Dates: start: 20220112
  7. GABAPENTIN [Suspect]
     Active Substance: GABAPENTIN
     Dosage: 200 MG, TID (GABAPENTIN TAPER WAS BEGUN PER PATIENT REQUEST SECONDARYTO LACK OF EFFICACY AND NEW ONS
     Route: 065
  8. GABAPENTIN [Suspect]
     Active Substance: GABAPENTIN
     Dosage: 300 MG, TID (THREE TIMES A DAY; THE DOSE OF GABAPENTIN WAS INCREASEDFOR 54 DAYS)
     Route: 065
     Dates: start: 20220210
  9. LORAZEPAM [Suspect]
     Active Substance: LORAZEPAM
     Indication: Serotonin syndrome
     Dosage: 1 MG
     Route: 065
     Dates: start: 20220424
  10. AMANTADINE [Suspect]
     Active Substance: AMANTADINE
     Indication: Post-traumatic headache
     Dosage: 100 MG, BID
     Route: 065
     Dates: start: 20220405
  11. ONDANSETRON [Suspect]
     Active Substance: ONDANSETRON
     Indication: Nausea
     Dosage: 20 TABLETS (THE PATIENT HAD NOT BEEN TAKING ONDANSETRON FOR SEVERALMONTHS.)
     Route: 065
  12. BOTULINUM TOXIN NOS [Concomitant]
     Active Substance: BOTULINUM TOXIN NOS
     Indication: Post-traumatic headache
     Dosage: 300 MG, TID
     Route: 065

REACTIONS (4)
  - Serotonin syndrome [Recovered/Resolved]
  - Drug ineffective for unapproved indication [Unknown]
  - Off label use [Unknown]
  - Drug effective for unapproved indication [Unknown]

NARRATIVE: CASE EVENT DATE: 20220424
